FAERS Safety Report 10251153 (Version 1)
Quarter: 2014Q2

REPORT INFORMATION
  Report Type: Spontaneous
  Country: US (occurrence: US)
  Receive Date: 20140620
  Receipt Date: 20140620
  Transmission Date: 20141212
  Serious: No
  Sender: FDA-Public Use
  Company Number: US-LUNDBECK-DKLU1100356

PATIENT
  Age: 25 Year
  Sex: Female

DRUGS (3)
  1. ONFI [Suspect]
     Indication: CONVULSION
     Dates: start: 201401
  2. ONFI [Suspect]
     Dates: start: 201402
  3. AEDS [Concomitant]
     Indication: PRODUCT USED FOR UNKNOWN INDICATION

REACTIONS (1)
  - Drug hypersensitivity [Recovering/Resolving]
